FAERS Safety Report 9949443 (Version 1)
Quarter: 2014Q1

REPORT INFORMATION
  Report Type: Report from Study
  Country: US (occurrence: US)
  Receive Date: 20140304
  Receipt Date: 20140304
  Transmission Date: 20141002
  Serious: No
  Sender: FDA-Public Use
  Company Number: US-ABBVIE-13P-163-1068881-00

PATIENT
  Age: 58 Year
  Sex: Female
  Weight: 75.36 kg

DRUGS (10)
  1. HUMIRA [Suspect]
     Indication: RHEUMATOID ARTHRITIS
  2. METHOTREXATE [Concomitant]
     Indication: RHEUMATOID ARTHRITIS
  3. NAPROSYN [Concomitant]
     Indication: INFLAMMATION
  4. ALLEGRA [Concomitant]
     Indication: SINUS DISORDER
  5. LISINOPRIL HCTZ [Concomitant]
     Indication: HYPERTENSION
  6. FOLIC ACID [Concomitant]
     Indication: VITAMIN SUPPLEMENTATION
  7. AMITRIPTYLINE [Concomitant]
     Indication: INSOMNIA
  8. PANTOZOL [Concomitant]
     Indication: DYSPEPSIA
  9. SYMBICORT [Concomitant]
     Indication: NASAL DISORDER
  10. MULTIVITAMIN [Concomitant]
     Indication: PRODUCT USED FOR UNKNOWN INDICATION

REACTIONS (1)
  - Nasopharyngitis [Recovering/Resolving]
